FAERS Safety Report 9070937 (Version 1)
Quarter: 2013Q1

REPORT INFORMATION
  Report Type: Spontaneous
  Country: US (occurrence: US)
  Receive Date: 20130206
  Receipt Date: 20130206
  Transmission Date: 20140127
  Serious: No
  Sender: FDA-Public Use
  Company Number: US-ALLERGAN-1206839US

PATIENT
  Age: 84 Year
  Sex: Female

DRUGS (1)
  1. RESTASIS? [Suspect]
     Indication: EYE DISORDER
     Dosage: 2 GTT, BID
     Route: 047
     Dates: start: 20120501, end: 20120510

REACTIONS (7)
  - Muscular weakness [Recovered/Resolved]
  - Asthenia [Recovered/Resolved]
  - Nervousness [Recovered/Resolved]
  - Hyperhidrosis [Recovered/Resolved]
  - Rash [Recovered/Resolved]
  - Ocular hyperaemia [Recovered/Resolved]
  - Vision blurred [Recovered/Resolved]
